FAERS Safety Report 8934606 (Version 2)
Quarter: 2012Q4

REPORT INFORMATION
  Report Type: 
  Country: CH (occurrence: CH)
  Receive Date: 20121129
  Receipt Date: 20121213
  Transmission Date: 20130627
  Serious: Yes (Hospitalization, Other)
  Sender: FDA-Public Use
  Company Number: CH-JNJFOC-20121113261

PATIENT
  Sex: Male
  Weight: 76 kg

DRUGS (3)
  1. XARELTO [Suspect]
     Indication: PRODUCT USED FOR UNKNOWN INDICATION
     Route: 048
     Dates: start: 20120705, end: 20121024
  2. ASPIRIN CARDIO [Concomitant]
     Route: 048
  3. AMIODARON [Concomitant]
     Route: 048

REACTIONS (2)
  - Eye disorder [Not Recovered/Not Resolved]
  - Optic nerve disorder [Recovered/Resolved with Sequelae]
